FAERS Safety Report 8961793 (Version 3)
Quarter: 2013Q1

REPORT INFORMATION
  Report Type: Spontaneous
  Country: AU (occurrence: AU)
  Receive Date: 20121213
  Receipt Date: 20130214
  Transmission Date: 20140127
  Serious: Yes (Life-Threatening, Hospitalization)
  Sender: FDA-Public Use
  Company Number: AU-009507513-1212AUS003818

PATIENT
  Age: 50 Year
  Sex: Male
  Weight: 106 kg

DRUGS (3)
  1. VICTRELIS 200 MG [Suspect]
     Route: 048
  2. RIBAVIRIN [Suspect]
     Route: 048
  3. PEGATRON [Suspect]

REACTIONS (3)
  - Pneumonia [Recovered/Resolved]
  - Diarrhoea [Recovered/Resolved]
  - Vomiting [Recovered/Resolved]
